FAERS Safety Report 4618135-7 (Version None)
Quarter: 2005Q1

REPORT INFORMATION
  Report Type: 
  Country: None (occurrence: None)
  Receive Date: 20050323
  Receipt Date: 20050303
  Transmission Date: 20050727
  Serious: Yes (Hospitalization)
  Sender: FDA-Public Use
  Company Number: 6013422

PATIENT
  Age: 61 Year
  Sex: Female

DRUGS (4)
  1. LEVOTHYROX [Suspect]
     Dosage: ORAL
     Route: 048
  2. DOXYCYCLINE [Suspect]
     Dosage: ORAL
     Route: 048
     Dates: end: 20050213
  3. CLONIDINE [Suspect]
     Dosage: ORAL
     Route: 048
     Dates: end: 20050214
  4. ARIMIDEX [Suspect]
     Dosage: ORAL
     Route: 048

REACTIONS (2)
  - AUTOIMMUNE THROMBOCYTOPENIA [None]
  - CONDITION AGGRAVATED [None]
